FAERS Safety Report 4472728-9 (Version None)
Quarter: 2004Q4

REPORT INFORMATION
  Report Type: 
  Country: None (occurrence: None)
  Receive Date: 20041008
  Receipt Date: 20040915
  Transmission Date: 20050328
  Serious: Yes (Hospitalization)
  Sender: FDA-Public Use
  Company Number: GBT040501402

PATIENT
  Age: 55 Year
  Sex: Female
  Weight: 72 kg

DRUGS (2)
  1. DULOXETINE HYDROCHLORIDE [Suspect]
     Indication: INCONTINENCE
     Dosage: 40 MG/2 DAY
     Dates: start: 20040511, end: 20040512
  2. THYROXINE [Concomitant]

REACTIONS (10)
  - CHILLS [None]
  - DISORIENTATION [None]
  - DISSOCIATION [None]
  - DRY MOUTH [None]
  - MALAISE [None]
  - NAUSEA [None]
  - PYREXIA [None]
  - RED BLOOD CELL COUNT DECREASED [None]
  - SEPSIS [None]
  - TREMOR [None]
